FAERS Safety Report 12709287 (Version 2)
Quarter: 2016Q3

REPORT INFORMATION
  Report Type: Spontaneous
  Country: US (occurrence: US)
  Receive Date: 20160901
  Receipt Date: 20160908
  Transmission Date: 20161109
  Serious: Yes (Other)
  Sender: FDA-Public Use
  Company Number: US-JAZZ-2016-US-016237

PATIENT
  Age: 29 Year
  Sex: Female

DRUGS (21)
  1. XYLITOL [Concomitant]
     Active Substance: XYLITOL
     Indication: PRODUCT USED FOR UNKNOWN INDICATION
  2. XYREM [Suspect]
     Active Substance: SODIUM OXYBATE
     Indication: NARCOLEPSY
     Dosage: 2.25 G, BID
     Route: 048
     Dates: start: 20160722, end: 201607
  3. XYREM [Interacting]
     Active Substance: SODIUM OXYBATE
     Dosage: 4.5 G, BID
     Route: 048
     Dates: start: 20160828
  4. ALBUTEROL SULFATE. [Concomitant]
     Active Substance: ALBUTEROL SULFATE
     Indication: PRODUCT USED FOR UNKNOWN INDICATION
  5. ERYTHROMYCIN. [Concomitant]
     Active Substance: ERYTHROMYCIN
     Indication: PRODUCT USED FOR UNKNOWN INDICATION
     Dosage: UNK
     Dates: end: 20160825
  6. ZANTAC [Concomitant]
     Active Substance: RANITIDINE HYDROCHLORIDE
     Indication: PRODUCT USED FOR UNKNOWN INDICATION
  7. XYREM [Interacting]
     Active Substance: SODIUM OXYBATE
     Indication: CATAPLEXY
     Dosage: DOSE ADJUSTMENTS
     Route: 048
     Dates: start: 201607, end: 201608
  8. PRILOSEC [Concomitant]
     Active Substance: OMEPRAZOLE MAGNESIUM
     Indication: PRODUCT USED FOR UNKNOWN INDICATION
     Dosage: UNK
     Dates: start: 20160819
  9. ADVIL [Concomitant]
     Active Substance: IBUPROFEN
     Indication: PRODUCT USED FOR UNKNOWN INDICATION
  10. KELNOR 1/35 [Concomitant]
     Active Substance: ETHINYL ESTRADIOL\ETHYNODIOL DIACETATE
     Indication: PRODUCT USED FOR UNKNOWN INDICATION
  11. CHOLESTYRAMINE. [Concomitant]
     Active Substance: CHOLESTYRAMINE
     Indication: PRODUCT USED FOR UNKNOWN INDICATION
     Dosage: UNK
     Dates: start: 20160809
  12. CLARITIN [Concomitant]
     Active Substance: LORATADINE
     Indication: PRODUCT USED FOR UNKNOWN INDICATION
  13. TYLENOL EXTRA STRENGTH [Concomitant]
     Active Substance: ACETAMINOPHEN
     Indication: PRODUCT USED FOR UNKNOWN INDICATION
  14. CONCERTA [Interacting]
     Active Substance: METHYLPHENIDATE HYDROCHLORIDE
     Indication: ATTENTION DEFICIT/HYPERACTIVITY DISORDER
     Dosage: UNK
     Dates: start: 2011, end: 20160824
  15. SINGULAIR [Concomitant]
     Active Substance: MONTELUKAST SODIUM
     Indication: PRODUCT USED FOR UNKNOWN INDICATION
  16. CYCLOBENZAPRINE [Concomitant]
     Active Substance: CYCLOBENZAPRINE
     Indication: PRODUCT USED FOR UNKNOWN INDICATION
  17. XYZAL [Concomitant]
     Active Substance: LEVOCETIRIZINE DIHYDROCHLORIDE
     Indication: PRODUCT USED FOR UNKNOWN INDICATION
  18. XYREM [Interacting]
     Active Substance: SODIUM OXYBATE
     Dosage: 4.5 G, BID
     Route: 048
     Dates: start: 201608, end: 20160824
  19. CHLORPHENIRAMINE. [Concomitant]
     Active Substance: CHLORPHENIRAMINE
     Indication: PRODUCT USED FOR UNKNOWN INDICATION
  20. NASACORT ALLERGY 24HR [Concomitant]
     Active Substance: TRIAMCINOLONE ACETONIDE
     Indication: PRODUCT USED FOR UNKNOWN INDICATION
  21. SUDAFED [Concomitant]
     Active Substance: PSEUDOEPHEDRINE HYDROCHLORIDE
     Indication: PRODUCT USED FOR UNKNOWN INDICATION

REACTIONS (13)
  - Weight decreased [Unknown]
  - Abdominal pain upper [Not Recovered/Not Resolved]
  - Dysphagia [Unknown]
  - Sensation of foreign body [Unknown]
  - Drug interaction [Unknown]
  - Heart rate increased [Unknown]
  - Dizziness [Unknown]
  - Oesophageal spasm [Recovering/Resolving]
  - Balance disorder [Unknown]
  - Feeling abnormal [Unknown]
  - Flushing [Unknown]
  - Malaise [Recovering/Resolving]
  - Anxiety [Recovering/Resolving]

NARRATIVE: CASE EVENT DATE: 2016
